FAERS Safety Report 11160829 (Version 1)
Quarter: 2015Q2

REPORT INFORMATION
  Report Type: Spontaneous
  Country: US (occurrence: US)
  Receive Date: 20150604
  Receipt Date: 20150604
  Transmission Date: 20150821
  Serious: No
  Sender: FDA-Public Use
  Company Number: US-BRISTOL-MYERS SQUIBB COMPANY-BMS-2015-034759

PATIENT
  Age: 56 Year
  Sex: Male

DRUGS (1)
  1. KENALOG-40 [Suspect]
     Active Substance: TRIAMCINOLONE ACETONIDE
     Indication: ARTHRITIS
     Dosage: 200 MG, UNK
     Route: 065

REACTIONS (1)
  - Overdose [Unknown]
